FAERS Safety Report 24398803 (Version 1)
Quarter: 2024Q4

REPORT INFORMATION
  Report Type: Spontaneous
  Country: US (occurrence: US)
  Receive Date: 20241004
  Receipt Date: 20241004
  Transmission Date: 20250115
  Serious: No
  Sender: PFIZER
  Company Number: US-PFIZER INC-202400263901

PATIENT
  Age: 69 Year
  Sex: Female
  Weight: 77.11 kg

DRUGS (12)
  1. HYDROCHLOROTHIAZIDE\SPIRONOLACTONE [Suspect]
     Active Substance: HYDROCHLOROTHIAZIDE\SPIRONOLACTONE
     Indication: Hepatic cirrhosis
     Dosage: 100 MG ONE AND A HALF TABLET A DAY BY MOUTH
     Route: 048
  2. HYDROCHLOROTHIAZIDE\SPIRONOLACTONE [Suspect]
     Active Substance: HYDROCHLOROTHIAZIDE\SPIRONOLACTONE
     Indication: Fluid retention
     Dosage: CUT IN HALF AND TAKE IT THREE TIMES A DAY
     Route: 048
     Dates: end: 20240923
  3. LASIX [Concomitant]
     Active Substance: FUROSEMIDE
     Indication: Fluid retention
     Dosage: 60 MG TABLET EVERY MORNING BY MOUTH
     Route: 048
  4. XIFAXAN [Concomitant]
     Active Substance: RIFAXIMIN
     Indication: Liver disorder
     Dosage: 500 MG TABLET TWICE A DAY BY MOUTH
     Route: 048
  5. OMEPRAZOLE [Concomitant]
     Active Substance: OMEPRAZOLE
     Indication: Dyspepsia
     Dosage: 40 MG CAPSULE ONCE A DAY BY MOUTH
     Route: 048
  6. VITAMIN E [Concomitant]
     Active Substance: .ALPHA.-TOCOPHEROL
     Dosage: A LITTLE GEL THING, ONE A DAY, BY MOUTH
     Route: 048
  7. VITAMIN D3 [Concomitant]
     Active Substance: CHOLECALCIFEROL
     Indication: Vitamin D decreased
     Dosage: A GEL THING, 25 MCG IN 1000 UNITS, ONE A DAY, BY MOUTH
     Route: 048
  8. CALCIUM PLUS D3 [Concomitant]
     Dosage: 600 MG TABLET, ONE A DAY, BY MOUTH
     Route: 048
  9. MAGNESIUM [Concomitant]
     Active Substance: MAGNESIUM
     Indication: Mineral supplementation
     Dosage: 250 MG TABLET ONCE A DAY BY MOUTH
     Route: 048
  10. RETINOL [Concomitant]
     Active Substance: RETINOL
     Indication: Immune system disorder
     Dosage: 10,000 UT IT^S A GEL THING, TWICE A DAY, BY MOUTH
     Route: 048
  11. LACTULOSE [Concomitant]
     Active Substance: LACTULOSE
     Indication: Prophylaxis
     Dosage: 10 ML EVERY MORNING, BY MOUTH
     Route: 048
  12. LACTULOSE [Concomitant]
     Active Substance: LACTULOSE
     Indication: Hepatic function abnormal

REACTIONS (9)
  - Allergic reaction to excipient [Unknown]
  - Illness [Unknown]
  - Pain [Unknown]
  - Abdominal pain upper [Unknown]
  - Loss of personal independence in daily activities [Unknown]
  - Renal disorder [Unknown]
  - Blood potassium decreased [Unknown]
  - Weight increased [Unknown]
  - Intentional product misuse [Unknown]

NARRATIVE: CASE EVENT DATE: 20240924
